FAERS Safety Report 5031569-4 (Version None)
Quarter: 2006Q2

REPORT INFORMATION
  Report Type: 
  Country: None (occurrence: None)
  Receive Date: 20060621
  Receipt Date: 20031015
  Transmission Date: 20061013
  Serious: Yes (Life-Threatening, Hospitalization)
  Sender: FDA-Public Use
  Company Number: FR-GLAXOSMITHKLINE-B0311998A

PATIENT
  Age: 63 Year
  Sex: Male

DRUGS (10)
  1. LANVIS [Suspect]
     Dosage: 80MG TWICE PER DAY
     Route: 048
     Dates: start: 20031001, end: 20031015
  2. FLAGYL [Concomitant]
     Dosage: 500MG TWICE PER DAY
     Route: 048
     Dates: start: 20031024
  3. PROCTOLOG [Concomitant]
     Dosage: 1SUP TWICE PER DAY
     Route: 054
     Dates: start: 20031024
  4. SELOKEN [Concomitant]
     Dosage: 50MG PER DAY
     Route: 048
     Dates: start: 20030901
  5. CORDARONE [Concomitant]
     Dosage: 200MG PER DAY
     Route: 048
     Dates: start: 20020101
  6. SMECTA [Concomitant]
     Dosage: 1BAG THREE TIMES PER DAY
     Route: 048
     Dates: start: 20031022
  7. ALLOPURINOL [Concomitant]
     Dosage: 300MG PER DAY
     Route: 048
     Dates: start: 20031007
  8. HYPERIUM [Concomitant]
     Route: 048
  9. BACTRIM [Concomitant]
     Indication: PROPHYLAXIS
     Dosage: 2TAB TWO TIMES PER WEEK
     Route: 048
     Dates: start: 20030801
  10. DIFFU K [Concomitant]
     Dosage: 1CAP THREE TIMES PER DAY
     Route: 048
     Dates: start: 20030801

REACTIONS (12)
  - ANAEMIA [None]
  - BACTERIAL INFECTION [None]
  - C-REACTIVE PROTEIN INCREASED [None]
  - DIARRHOEA HAEMORRHAGIC [None]
  - DYSPLASIA [None]
  - LEUKOPENIA [None]
  - NEUTROPENIA [None]
  - PANCYTOPENIA [None]
  - PETECHIAE [None]
  - PYREXIA [None]
  - RECTAL HAEMORRHAGE [None]
  - THROMBOCYTOPENIA [None]
